FAERS Safety Report 6782127-2 (Version None)
Quarter: 2010Q2

REPORT INFORMATION
  Report Type: 
  Country: None (occurrence: None)
  Receive Date: 20100615
  Receipt Date: 20100531
  Transmission Date: 20101027
  Serious: Yes (Hospitalization)
  Sender: FDA-Public Use
  Company Number: 2010060032

PATIENT
  Age: 79 Year
  Sex: Female

DRUGS (7)
  1. TORSEMIDE [Suspect]
     Dosage: 5 MG (5 MG, 1 IN 1 D), ORAL
     Route: 048
     Dates: end: 20100331
  2. METOLAZON (METOLAZONE) [Suspect]
     Dosage: 2.5 MG (2.5 MG 1 IN 1 D), ORAL
     Route: 048
     Dates: end: 20100331
  3. SINTROM [Concomitant]
  4. CORDARONE [Concomitant]
  5. RAMIPRIL [Concomitant]
  6. PANTOPRAZOLE SODIUM [Concomitant]
  7. POTASSIUM CHLORIDE [Concomitant]

REACTIONS (3)
  - DYSPNOEA [None]
  - HYPERCAPNIA [None]
  - HYPONATRAEMIA [None]
